FAERS Safety Report 4829405-1 (Version None)
Quarter: 2005Q4

REPORT INFORMATION
  Report Type: 
  Country: None (occurrence: None)
  Receive Date: 20051116
  Receipt Date: 20051018
  Transmission Date: 20060501
  Serious: Yes (Hospitalization)
  Sender: FDA-Public Use
  Company Number: PHHO2005US16544

PATIENT
  Age: 76 Year
  Sex: Female
  Weight: 79 kg

DRUGS (5)
  1. ZOLEDRONIC ACID VS PLACEBO [Suspect]
     Indication: METASTASES TO BONE
     Dosage: 4 MG, UNK
     Route: 042
     Dates: start: 20051007
  2. TAXOTERE [Concomitant]
     Indication: NON-SMALL CELL LUNG CANCER
     Dosage: 137 MG, UNK
     Route: 042
     Dates: start: 20051007
  3. CARBOPLATIN [Concomitant]
     Indication: NON-SMALL CELL LUNG CANCER
     Dosage: 420 MG, UNK
     Route: 042
     Dates: start: 20051007
  4. VITAMIN D [Concomitant]
     Indication: METASTASES TO BONE
     Route: 048
  5. CALCIUM GLUCONATE [Concomitant]
     Indication: METASTASES TO BONE

REACTIONS (5)
  - BACTERIAL INFECTION [None]
  - CELLULITIS [None]
  - DENTAL TREATMENT [None]
  - JAW OPERATION [None]
  - OSTEOMYELITIS [None]
